FAERS Safety Report 7628865-0 (Version None)
Quarter: 2011Q3

REPORT INFORMATION
  Report Type: 
  Country: None (occurrence: None)
  Receive Date: 20110722
  Receipt Date: 20110412
  Transmission Date: 20111222
  Serious: No
  Sender: FDA-Public Use
  Company Number: US-MYLANLABS-2011S1007835

PATIENT
  Age: 62 Year
  Sex: Female

DRUGS (2)
  1. LIOTHYRONINE SODIUM [Suspect]
     Route: 048
     Dates: start: 20110401, end: 20110401
  2. SYNTHROID [Concomitant]

REACTIONS (4)
  - SKIN EXFOLIATION [None]
  - RASH PRURITIC [None]
  - ERYTHEMA [None]
  - REACTION TO DRUG EXCIPIENTS [None]
